FAERS Safety Report 8390160-2 (Version None)
Quarter: 2012Q2

REPORT INFORMATION
  Report Type: 
  Country: None (occurrence: None)
  Receive Date: 20120529
  Receipt Date: 20120525
  Transmission Date: 20120825
  Serious: Yes (Hospitalization, Other)
  Sender: FDA-Public Use
  Company Number: US-PFIZER INC-2012127220

PATIENT
  Sex: Female
  Weight: 68 kg

DRUGS (1)
  1. CELEBREX [Suspect]
     Indication: OSTEOARTHRITIS
     Dosage: 200 MG, DAILY
     Dates: end: 20110101

REACTIONS (4)
  - MENTAL IMPAIRMENT [None]
  - ULCER HAEMORRHAGE [None]
  - STRESS [None]
  - ANAEMIA [None]
